FAERS Safety Report 4464650-9 (Version None)
Quarter: 2004Q3

REPORT INFORMATION
  Report Type: 
  Country: None (occurrence: None)
  Receive Date: 20040928
  Receipt Date: 20040915
  Transmission Date: 20050211
  Serious: Yes (Other)
  Sender: FDA-Public Use
  Company Number: 2004066478

PATIENT
  Age: 42 Year
  Sex: Male

DRUGS (1)
  1. ZOLOFT [Suspect]
     Indication: DEPRESSION
     Dosage: 100 MG (1 IN 1 D),
     Dates: start: 20040101

REACTIONS (4)
  - EPILEPSY [None]
  - FUMBLING [None]
  - HEADACHE [None]
  - HYPOAESTHESIA [None]
